FAERS Safety Report 5563186-1 (Version None)
Quarter: 2007Q4

REPORT INFORMATION
  Report Type: 
  Country: None (occurrence: None)
  Receive Date: 20071217
  Receipt Date: 20071206
  Transmission Date: 20080405
  Serious: Yes (Hospitalization)
  Sender: FDA-Public Use
  Company Number: US-JNJFOC-20071202407

PATIENT
  Sex: Female
  Weight: 68.04 kg

DRUGS (7)
  1. FENTANYL TRANSDERMAL SYSTEM [Suspect]
     Indication: SPINAL DISORDER
     Route: 062
  2. UNSPECIFIED SEDATIVES [Suspect]
     Indication: COLONOSCOPY
     Route: 065
  3. UNSPECIFIED GENERAL ANESTHETIC [Suspect]
     Indication: KNEE ARTHROPLASTY
     Route: 065
  4. PREMARIN [Concomitant]
     Indication: HORMONE REPLACEMENT THERAPY
     Route: 048
  5. SYNTHROID [Concomitant]
     Indication: THYROID DISORDER
     Route: 048
  6. TAMBOCOR [Concomitant]
     Indication: ARRHYTHMIA
     Route: 048
  7. CLONAZEPAM [Concomitant]
     Indication: ANXIETY
     Dosage: AT NIGHT
     Route: 048

REACTIONS (3)
  - ANAESTHETIC COMPLICATION [None]
  - ARTHRITIS [None]
  - UNWANTED AWARENESS DURING ANAESTHESIA [None]
